FAERS Safety Report 13827717 (Version 1)
Quarter: 2017Q3

REPORT INFORMATION
  Report Type: Spontaneous
  Country: FR (occurrence: FR)
  Receive Date: 20170803
  Receipt Date: 20170803
  Transmission Date: 20171127
  Serious: Yes (Other)
  Sender: FDA-Public Use
  Company Number: FR-MERCK KGAA-2024106

PATIENT
  Age: 23 Year
  Sex: Female

DRUGS (5)
  1. PREVISCAN [Suspect]
     Active Substance: FLUINDIONE
     Dates: end: 20121205
  2. SECTRAL [Suspect]
     Active Substance: ACEBUTOLOL HYDROCHLORIDE
     Dates: end: 20130227
  3. ADCIRCA [Suspect]
     Active Substance: TADALAFIL
     Dates: end: 20130227
  4. NOVOTHYROX [Suspect]
     Active Substance: LEVOTHYROXINE SODIUM
     Indication: PRODUCT USED FOR UNKNOWN INDICATION
  5. FRAXODI [Suspect]
     Active Substance: NADROPARIN CALCIUM
     Dates: start: 20121205, end: 20130227

REACTIONS (5)
  - Complication of pregnancy [Recovered/Resolved]
  - Maternal exposure during pregnancy [Recovered/Resolved]
  - Live birth [Recovered/Resolved]
  - Premature delivery [Recovered/Resolved]
  - Metrorrhagia [Unknown]

NARRATIVE: CASE EVENT DATE: 20120815
